FAERS Safety Report 4426631-0 (Version None)
Quarter: 2004Q3

REPORT INFORMATION
  Report Type: 
  Country: None (occurrence: None)
  Receive Date: 20040811
  Receipt Date: 20040730
  Transmission Date: 20050211
  Serious: Yes (Hospitalization)
  Sender: FDA-Public Use
  Company Number: 2004080004

PATIENT
  Age: 7 Year
  Sex: Female
  Weight: 24 kg

DRUGS (4)
  1. TALOXA (FELBAMATE) [Suspect]
     Indication: EPILEPSY
     Dosage: 2 MI TID, PO
     Route: 048
     Dates: start: 20040227, end: 20040326
  2. DEPAKENE [Suspect]
     Indication: EPILEPSY
     Dosage: 750 MG QD PO
     Route: 048
     Dates: start: 20030801
  3. LAMICTAL [Suspect]
     Indication: EPILEPSY
     Dosage: 20 MG QD, PO
     Route: 048
     Dates: start: 20040126, end: 20040402
  4. TOPIRAMATE [Suspect]
     Indication: EPILEPSY
     Dosage: 80-40 MG QD, PO
     Route: 048
     Dates: start: 20040113, end: 20040408

REACTIONS (3)
  - IATROGENIC INJURY [None]
  - LEUKOPENIA [None]
  - NEUTROPENIA [None]
